FAERS Safety Report 5932154-X (Version None)
Quarter: 2008Q4

REPORT INFORMATION
  Report Type: 
  Country: None (occurrence: None)
  Receive Date: 20081022
  Receipt Date: 20081012
  Transmission Date: 20090506
  Serious: Yes (Other)
  Sender: FDA-Public Use
  Company Number: 08-050

PATIENT
  Age: 5 Year
  Sex: Male
  Weight: 18.3 kg

DRUGS (1)
  1. CEFTRIAXONE [Suspect]
     Indication: PNEUMONIA
     Dosage: 2G/DAY, TWICE + IV
     Route: 042

REACTIONS (7)
  - ALANINE AMINOTRANSFERASE INCREASED [None]
  - ASPARTATE AMINOTRANSFERASE INCREASED [None]
  - BILIARY DILATATION [None]
  - BILIARY TRACT DISORDER [None]
  - CHOLELITHIASIS [None]
  - GALLBLADDER DISORDER [None]
  - ULTRASOUND ABDOMEN ABNORMAL [None]
